FAERS Safety Report 7959623-5 (Version None)
Quarter: 2011Q4

REPORT INFORMATION
  Report Type: 
  Country: None (occurrence: None)
  Receive Date: 20111206
  Receipt Date: 20111123
  Transmission Date: 20120403
  Serious: Yes (Other)
  Sender: FDA-Public Use
  Company Number: US-AMGEN-USASP2011045511

PATIENT
  Age: 85 Year
  Sex: Male
  Weight: 77.098 kg

DRUGS (33)
  1. PROCRIT [Suspect]
     Dosage: 60000 IU, Q2WK
     Route: 058
     Dates: start: 20050202, end: 20050214
  2. PROCRIT [Suspect]
     Dosage: 60000 IU, QWK
     Route: 058
     Dates: start: 20060111, end: 20060126
  3. PROCRIT [Suspect]
     Dosage: 10000 IU, Q2WK
     Route: 058
     Dates: start: 20091015, end: 20091112
  4. PROCRIT [Suspect]
     Dosage: 10000 IU, Q2WK
     Route: 058
     Dates: start: 20100513, end: 20100624
  5. PROCRIT [Suspect]
     Dosage: 10000 IU, UNK
     Route: 058
     Dates: start: 20100923
  6. PROCRIT [Suspect]
     Dosage: 30000 IU, QWK
     Route: 058
     Dates: start: 20060308, end: 20060315
  7. PROCRIT [Suspect]
     Dosage: 20000 IU, Q2WK
     Route: 058
     Dates: start: 20060830, end: 20061011
  8. PROCRIT [Suspect]
     Dosage: 10000 IU, Q2WK
     Route: 058
     Dates: start: 20061108, end: 20061226
  9. PROCRIT [Suspect]
     Dosage: 10000 IU, Q2WK
     Route: 058
     Dates: start: 20070227, end: 20070510
  10. PROCRIT [Suspect]
     Dosage: 8000 IU, Q2WK
     Route: 058
     Dates: start: 20070910, end: 20071121
  11. PROCRIT [Suspect]
     Dosage: 10000 IU, UNK
     Dates: start: 20090623
  12. PROCRIT [Suspect]
     Dosage: 10000 IU, UNK
     Route: 058
     Dates: start: 20100107
  13. PROCRIT [Suspect]
     Dosage: 10000 IU, UNK
     Route: 058
     Dates: start: 20100317
  14. AMLODIPINE [Concomitant]
     Indication: HYPERTENSION
     Dosage: UNK
  15. PROCRIT [Suspect]
     Dosage: 40000 IU, Q2WK
     Route: 058
     Dates: start: 20060410, end: 20060719
  16. PROCRIT [Suspect]
     Dosage: 60000 IU, UNK
     Route: 058
     Dates: start: 20050928
  17. PROCRIT [Suspect]
     Dosage: 10000 IU, QWK
     Route: 058
     Dates: start: 20070517, end: 20070531
  18. PROCRIT [Suspect]
     Dosage: 10000 IU, UNK
     Route: 058
     Dates: start: 20100722
  19. PROCRIT [Suspect]
     Dosage: 10000 IU, QMO
     Route: 058
     Dates: start: 20101103, end: 20101202
  20. FOSAMAX [Concomitant]
  21. PROCRIT [Suspect]
     Dosage: 8000 IU, UNK
     Route: 058
     Dates: start: 20070813
  22. PROCRIT [Suspect]
     Dosage: 60000 IU, QWK
     Route: 058
     Dates: start: 20050214, end: 20050221
  23. PROCRIT [Suspect]
     Dosage: 10000 IU, Q2WK
     Route: 058
     Dates: start: 20080807, end: 20080911
  24. PROCRIT [Suspect]
     Dosage: 10000 IU, UNK
     Dates: start: 20090806
  25. PROCRIT [Suspect]
     Dosage: 10000 IU, UNK
     Route: 058
     Dates: start: 20110525
  26. AVANDIA [Concomitant]
     Indication: DIABETES MELLITUS
     Dosage: UNK
  27. PROCRIT [Suspect]
     Dosage: 10000 IU, QWK
     Route: 058
     Dates: start: 20061227, end: 20070208
  28. PROCRIT [Suspect]
     Indication: ANAEMIA
     Dosage: 10000 IU, UNK
     Dates: start: 20110721
  29. PROCRIT [Suspect]
     Dosage: 60000 IU, QWK
     Route: 058
     Dates: start: 20050909
  30. PROCRIT [Suspect]
     Dosage: 40000 IU, QWK
     Route: 058
     Dates: start: 20060208, end: 20060222
  31. PROCRIT [Suspect]
     Dosage: 8000 IU, QWK
     Route: 058
     Dates: start: 20070615, end: 20070726
  32. PROCRIT [Suspect]
     Dosage: 10000 IU, Q2WK
     Route: 058
     Dates: start: 20071205, end: 20080709
  33. PROCRIT [Suspect]
     Dosage: 10000 IU, UNK
     Route: 058
     Dates: start: 20110331

REACTIONS (31)
  - HAEMOGLOBIN DECREASED [None]
  - ORTHOSTATIC HYPOTENSION [None]
  - CEREBRAL ATROPHY [None]
  - NERVOUSNESS [None]
  - FATIGUE [None]
  - PROSTATE CANCER [None]
  - ASTHMA [None]
  - DYSPNOEA [None]
  - HYPERTENSION [None]
  - PARKINSON'S DISEASE [None]
  - REFRACTORY ANAEMIA [None]
  - PROSTATIC SPECIFIC ANTIGEN INCREASED [None]
  - POLLAKIURIA [None]
  - NERVOUS SYSTEM DISORDER [None]
  - RENAL FAILURE [None]
  - MYELODYSPLASTIC SYNDROME [None]
  - LEUKOPENIA [None]
  - CEREBRAL ISCHAEMIA [None]
  - VOMITING [None]
  - ASTHENIA [None]
  - HEART RATE IRREGULAR [None]
  - MUSCULOSKELETAL DISCOMFORT [None]
  - HELICOBACTER GASTRITIS [None]
  - BLOOD PRESSURE SYSTOLIC INCREASED [None]
  - DYSURIA [None]
  - IRON DEFICIENCY [None]
  - BALANCE DISORDER [None]
  - DIZZINESS [None]
  - GASTROINTESTINAL HAEMORRHAGE [None]
  - HYPERHIDROSIS [None]
  - NAUSEA [None]
